FAERS Safety Report 15323354 (Version 4)
Quarter: 2018Q3

REPORT INFORMATION
  Report Type: Report from Study
  Country: JP (occurrence: JP)
  Receive Date: 20180827
  Receipt Date: 20180913
  Transmission Date: 20181010
  Serious: Yes (Hospitalization, Other)
  Sender: FDA-Public Use
  Company Number: JP-EISAI MEDICAL RESEARCH-EC-2018-044439

PATIENT
  Age: 71 Year
  Sex: Male
  Weight: 49 kg

DRUGS (13)
  1. LENVATINIB [Suspect]
     Active Substance: LENVATINIB
     Route: 048
     Dates: start: 20180719, end: 20180823
  2. PEMBROLIZUMAB. [Suspect]
     Active Substance: PEMBROLIZUMAB
     Indication: RENAL CELL CARCINOMA
     Route: 041
     Dates: start: 20180630, end: 201808
  3. CANDESARTAN. [Concomitant]
     Active Substance: CANDESARTAN
  4. HEPARINOID [Concomitant]
     Active Substance: CHONDROITIN SULFATE (BOVINE)
  5. AMLODIPINE [Concomitant]
     Active Substance: AMLODIPINE BESYLATE
  6. CILOSTAZOL. [Concomitant]
     Active Substance: CILOSTAZOL
  7. KETOCONAZOLE. [Concomitant]
     Active Substance: KETOCONAZOLE
  8. LENVATINIB [Suspect]
     Active Substance: LENVATINIB
     Indication: RENAL CELL CARCINOMA
     Route: 048
     Dates: start: 20180630, end: 20180713
  9. BIO?THREE [Concomitant]
     Active Substance: HERBALS
  10. ANTEBATE: OINTMENT [Concomitant]
     Active Substance: BETAMETHASONE DIPROPIONATE
  11. LIXIANA [Concomitant]
     Active Substance: EDOXABAN TOSYLATE
  12. AZULENE [Concomitant]
     Active Substance: AZULENE
  13. THYRADIN S [Concomitant]
     Active Substance: LEVOTHYROXINE SODIUM

REACTIONS (2)
  - Pneumothorax [Recovered/Resolved]
  - Decreased appetite [Recovered/Resolved]

NARRATIVE: CASE EVENT DATE: 20180805
